FAERS Safety Report 7628801-7 (Version None)
Quarter: 2011Q3

REPORT INFORMATION
  Report Type: 
  Country: None (occurrence: None)
  Receive Date: 20110722
  Receipt Date: 20110711
  Transmission Date: 20111222
  Serious: Yes (Hospitalization, Other)
  Sender: FDA-Public Use
  Company Number: US-BAYER-201029928NA

PATIENT
  Age: 33 Year
  Sex: Female
  Weight: 143 kg

DRUGS (16)
  1. YASMIN [Suspect]
     Indication: ACNE
  2. PAROXETINE HCL [Concomitant]
     Dosage: 20 MG, UNK
     Route: 048
     Dates: start: 20090803
  3. YASMIN [Suspect]
     Indication: ORAL CONTRACEPTION
     Dosage: UNK UNK, UNK
     Route: 048
     Dates: start: 20060101, end: 20090821
  4. DICLOFENAC SODIUM [Concomitant]
     Dosage: 75 MG, UNK
     Route: 048
     Dates: start: 20090705
  5. DROSPIRENONE AND ETHINYL ESTRADIOL [Suspect]
     Indication: ACNE
  6. DROSPIRENONE AND ETHINYL ESTRADIOL [Suspect]
     Indication: PREMENSTRUAL SYNDROME
  7. GEODON [Concomitant]
     Dosage: 60 MG, UNK
     Route: 048
     Dates: start: 20090805
  8. DROSPIRENONE AND ETHINYL ESTRADIOL [Suspect]
     Indication: ORAL CONTRACEPTION
     Dosage: UNK
     Dates: start: 20080101, end: 20090101
  9. HYDROCODONE BITARTRATE AND ACETAMINOPHEN [Concomitant]
     Dosage: UNK
     Route: 048
     Dates: start: 20090803
  10. YASMIN [Suspect]
     Indication: PREMENSTRUAL SYNDROME
  11. METFORMIN HCL [Concomitant]
     Dosage: 500 MG, UNK
     Route: 048
     Dates: start: 20090705
  12. SULFAMETH/TRMETHOPRIM [Concomitant]
     Dosage: UNK
     Route: 048
     Dates: start: 20090806
  13. PROPOXYPHENE NAPSYLATE [Concomitant]
     Dosage: UNK
     Route: 048
     Dates: start: 20090908
  14. BUSPIRONE HCL [Concomitant]
     Dosage: 15 MG, UNK
     Route: 048
     Dates: start: 20090928
  15. CHLORZOXAZONE [Concomitant]
     Dosage: 500 MG, UNK
     Route: 048
     Dates: start: 20090814
  16. CLONAZEPAM [Concomitant]
     Dosage: 1 MG, UNK
     Route: 048
     Dates: start: 20090805

REACTIONS (10)
  - CHEST PAIN [None]
  - DYSPNOEA [None]
  - OEDEMA PERIPHERAL [None]
  - ASTHENIA [None]
  - FEAR OF DEATH [None]
  - DIZZINESS [None]
  - PAIN IN EXTREMITY [None]
  - FATIGUE [None]
  - PULMONARY EMBOLISM [None]
  - DEEP VEIN THROMBOSIS [None]
